FAERS Safety Report 18497685 (Version 1)
Quarter: 2020Q4

REPORT INFORMATION
  Report Type: Spontaneous
  Country: US (occurrence: US)
  Receive Date: 20201112
  Receipt Date: 20201112
  Transmission Date: 20210114
  Serious: No
  Sender: FDA-Public Use
  Company Number: US-PFIZER INC-2020443222

PATIENT
  Sex: Female

DRUGS (3)
  1. CAMILA [Suspect]
     Active Substance: NORETHINDRONE
     Dosage: UNK
  2. PREMARIN [Suspect]
     Active Substance: ESTROGENS, CONJUGATED
     Dosage: UNK
  3. PREMARIN [Suspect]
     Active Substance: ESTROGENS, CONJUGATED
     Dosage: INCREASED

REACTIONS (3)
  - Abdominal distension [Unknown]
  - Fluid retention [Unknown]
  - Weight increased [Unknown]
